FAERS Safety Report 24426678 (Version 1)
Quarter: 2024Q4

REPORT INFORMATION
  Report Type: Spontaneous
  Country: US (occurrence: None)
  Receive Date: 20241010
  Receipt Date: 20241010
  Transmission Date: 20250115
  Serious: Yes (Death)
  Sender: Public
  Company Number: None

PATIENT
  Age: 54 Year
  Sex: Male

DRUGS (10)
  1. FARXIGA [Suspect]
     Active Substance: DAPAGLIFLOZIN PROPANEDIOL
  2. HYDROCHLOROTHIAZIDE [Suspect]
     Active Substance: HYDROCHLOROTHIAZIDE
  3. HYDROCHLOROTHIAZIDE [Suspect]
     Active Substance: HYDROCHLOROTHIAZIDE
  4. PRIFTIN [Suspect]
     Active Substance: RIFAPENTINE
  5. TRIUMEQ [Suspect]
     Active Substance: ABACAVIR SULFATE\DOLUTEGRAVIR SODIUM\LAMIVUDINE
  6. AMLODIPINE [Suspect]
     Active Substance: AMLODIPINE BESYLATE
  7. GLIPIZIDE ER [Concomitant]
     Active Substance: GLIPIZIDE
  8. LISINOPRIL [Suspect]
     Active Substance: LISINOPRIL
  9. ATORVASTATIN [Suspect]
     Active Substance: ATORVASTATIN
  10. ISONIAZID [Suspect]
     Active Substance: ISONIAZID

REACTIONS (1)
  - Death [None]

NARRATIVE: CASE EVENT DATE: 20240801
